FAERS Safety Report 8494842-3 (Version None)
Quarter: 2012Q3

REPORT INFORMATION
  Report Type: 
  Country: None (occurrence: None)
  Receive Date: 20120709
  Receipt Date: 20120705
  Transmission Date: 20120928
  Serious: Yes (Other)
  Sender: FDA-Public Use
  Company Number: BR-PFIZER INC-2012162216

PATIENT
  Age: 33 Year
  Sex: Female
  Weight: 53 kg

DRUGS (1)
  1. ZOLOFT [Suspect]
     Indication: ANXIETY DISORDER
     Dosage: 25 MG (A HALF OF TABLET OF 50MG) DAILY FOR 4 DAYS AND AFTER ONE TABLET (50MG) DAILY
     Route: 048
     Dates: start: 20120704

REACTIONS (6)
  - BRADYPHRENIA [None]
  - FEELING COLD [None]
  - PERIPHERAL COLDNESS [None]
  - VISION BLURRED [None]
  - HYPOTENSION [None]
  - SOMNOLENCE [None]
